FAERS Safety Report 8341711-5 (Version None)
Quarter: 2012Q2

REPORT INFORMATION
  Report Type: 
  Country: None (occurrence: None)
  Receive Date: 20120507
  Receipt Date: 20120430
  Transmission Date: 20120825
  Serious: Yes (Life-Threatening, Hospitalization)
  Sender: FDA-Public Use
  Company Number: AU-CELGENEUS-008-CCAZA-12043282

PATIENT
  Sex: Male
  Weight: 97.8 kg

DRUGS (10)
  1. IRBESARTAN AND HIDROCLOROTIAZIDA [Concomitant]
     Indication: HYPERTENSION
     Dosage: 300/12.5 MG
     Route: 048
     Dates: start: 20070101
  2. ATORVASTATIN CALCIUM [Concomitant]
     Dosage: 80 MILLIGRAM
     Route: 048
     Dates: start: 20070101
  3. POSACONAZOLE [Concomitant]
     Indication: ANTIFUNGAL PROPHYLAXIS
     Dosage: 600 MILLIGRAM
     Route: 048
     Dates: start: 20120424
  4. METOCLOPRAMIDE [Concomitant]
     Indication: NAUSEA
     Route: 048
     Dates: start: 20120426
  5. TEMAZEPAM [Concomitant]
     Indication: INSOMNIA
     Dosage: 10 MILLIGRAM
     Route: 048
     Dates: start: 20120426
  6. NORFLOXACIN [Concomitant]
     Indication: ANTIBIOTIC THERAPY
     Dosage: 800 MILLIGRAM
     Route: 048
     Dates: start: 20120424
  7. ACETAMINOPHEN [Concomitant]
     Indication: BACK PAIN
     Route: 048
     Dates: start: 20110101
  8. AZACITIDINE [Suspect]
     Dosage: 75 MILLIGRAM/SQ. METER
     Route: 058
     Dates: start: 20120426, end: 20120428
  9. FAMCICLOVIR [Concomitant]
     Indication: ANTIVIRAL PROPHYLAXIS
     Dosage: 1000 MILLIGRAM
     Route: 048
     Dates: start: 20120424
  10. TROPISETRON [Concomitant]
     Indication: NAUSEA
     Dosage: 5 MILLIGRAM
     Route: 041
     Dates: start: 20120426

REACTIONS (1)
  - ACUTE PULMONARY OEDEMA [None]
